FAERS Safety Report 4898230-8 (Version None)
Quarter: 2006Q1

REPORT INFORMATION
  Report Type: 
  Country: None (occurrence: None)
  Receive Date: 20060201
  Receipt Date: 20051006
  Transmission Date: 20060701
  Serious: Yes (Death, Hospitalization)
  Sender: FDA-Public Use
  Company Number: US-MERCK-0510USA05607

PATIENT
  Age: 86 Year
  Sex: Female
  Weight: 71 kg

DRUGS (4)
  1. VIOXX [Suspect]
     Route: 048
     Dates: start: 20030301
  2. ADVIL [Concomitant]
     Route: 065
  3. TYLENOL [Concomitant]
     Route: 065
  4. [THERAPY UNSPECIFIED] [Concomitant]
     Indication: HYPERTENSION
     Route: 065

REACTIONS (9)
  - ACUTE MYOCARDIAL INFARCTION [None]
  - AORTIC VALVE STENOSIS [None]
  - BLOOD PRESSURE DECREASED [None]
  - BRONCHIAL OBSTRUCTION [None]
  - CARDIAC FAILURE CONGESTIVE [None]
  - CONVULSION [None]
  - LOBAR PNEUMONIA [None]
  - MULTI-ORGAN FAILURE [None]
  - RENAL FAILURE [None]
